FAERS Safety Report 8910805 (Version 2)
Quarter: 2012Q4

REPORT INFORMATION
  Report Type: 
  Country: IT (occurrence: IT)
  Receive Date: 20121116
  Receipt Date: 20121207
  Transmission Date: 20130627
  Serious: Yes (Life-Threatening, Other)
  Sender: FDA-Public Use
  Company Number: IT-PFIZER INC-2012285107

PATIENT
  Age: 50 Year
  Sex: Female

DRUGS (3)
  1. LYRICA [Suspect]
     Indication: INTENTIONAL SELF-INJURY
     Dosage: 10 DF, single
     Route: 048
     Dates: start: 20121110, end: 20121110
  2. SEROQUEL [Suspect]
     Indication: INTENTIONAL SELF-INJURY
     Dosage: 2000 mg, single
     Route: 048
     Dates: start: 20121110, end: 20121110
  3. EN [Suspect]
     Indication: INTENTIONAL SELF-INJURY
     Dosage: 20 ml, single
     Route: 048
     Dates: start: 20121110, end: 20121110

REACTIONS (6)
  - Intentional self-injury [Recovering/Resolving]
  - Coma [Recovering/Resolving]
  - Respiratory failure [Recovering/Resolving]
  - Blood pressure decreased [Recovering/Resolving]
  - Drug screen positive [Recovering/Resolving]
  - Heart rate increased [Recovering/Resolving]
